FAERS Safety Report 18642807 (Version 1)
Quarter: 2020Q4

REPORT INFORMATION
  Report Type: Spontaneous
  Country: RU (occurrence: RU)
  Receive Date: 20201221
  Receipt Date: 20201221
  Transmission Date: 20210114
  Serious: Yes (Other)
  Sender: FDA-Public Use
  Company Number: RU-ROCHE-2735794

PATIENT
  Age: 37 Year

DRUGS (1)
  1. EMICIZUMAB. [Suspect]
     Active Substance: EMICIZUMAB
     Indication: FACTOR VIII DEFICIENCY
     Route: 065

REACTIONS (4)
  - Synovitis [Unknown]
  - Blood pressure increased [Unknown]
  - Haemarthrosis [Unknown]
  - Sinus tachycardia [Unknown]
